FAERS Safety Report 8866368 (Version 1)
Quarter: 2012Q4

REPORT INFORMATION
  Report Type: 
  Country: US (occurrence: US)
  Receive Date: 20121025
  Receipt Date: 20121025
  Transmission Date: 20130627
  Serious: No
  Sender: FDA-Public Use
  Company Number: US-ASTRAZENECA-2012SE79056

PATIENT
  Age: 32 Year
  Sex: Female

DRUGS (1)
  1. SEROQUEL [Suspect]
     Route: 048

REACTIONS (5)
  - Diarrhoea [Unknown]
  - Nausea [Unknown]
  - Night sweats [Unknown]
  - Withdrawal syndrome [Unknown]
  - Drug dose omission [Unknown]
